FAERS Safety Report 8428553-7 (Version None)
Quarter: 2012Q2

REPORT INFORMATION
  Report Type: 
  Country: None (occurrence: None)
  Receive Date: 20120606
  Receipt Date: 20120606
  Transmission Date: 20120825
  Serious: Yes (Disabling, Other)
  Sender: FDA-Public Use
  Company Number: None

PATIENT
  Age: 64 Year
  Sex: Male
  Weight: 115.2136 kg

DRUGS (1)
  1. LOSARTAN POTASSIUM AND HYDROCHLOROTHIAZIDE [Suspect]
     Indication: HYPERTENSION
     Dosage: ONE DAILY PO
     Route: 048
     Dates: start: 20120519, end: 20120604

REACTIONS (5)
  - DIPLOPIA [None]
  - BACK PAIN [None]
  - HEADACHE [None]
  - EYE PAIN [None]
  - ANGLE CLOSURE GLAUCOMA [None]
